FAERS Safety Report 9483514 (Version 1)
Quarter: 2013Q3

REPORT INFORMATION
  Report Type: Spontaneous
  Country: CA (occurrence: CA)
  Receive Date: 20130828
  Receipt Date: 20130828
  Transmission Date: 20140515
  Serious: Yes (Other)
  Sender: FDA-Public Use
  Company Number: CA-AMGEN-KDL278560

PATIENT
  Age: 63 Year
  Sex: Female

DRUGS (2)
  1. ENBREL [Suspect]
     Indication: RHEUMATOID ARTHRITIS
     Dosage: UNK UNK, 2 TIMES/WK
     Route: 058
     Dates: start: 20031203, end: 20071220
  2. METHOTREXATE [Concomitant]
     Dosage: UNK UNK, UNK
     Route: 058

REACTIONS (3)
  - Breast cancer [Recovering/Resolving]
  - Synovial cyst [Unknown]
  - Arthralgia [Unknown]
